FAERS Safety Report 6839284-9 (Version None)
Quarter: 2010Q3

REPORT INFORMATION
  Report Type: 
  Country: None (occurrence: None)
  Receive Date: 20100714
  Receipt Date: 20100524
  Transmission Date: 20110219
  Serious: No
  Sender: FDA-Public Use
  Company Number: US-KINGPHARMUSA00001-K201000656

PATIENT
  Age: 22 Year
  Sex: Male

DRUGS (2)
  1. BICILLIN L-A [Suspect]
     Indication: LYME DISEASE
     Dosage: 1200000 IU, QW
     Route: 030
     Dates: start: 20100401, end: 20100401
  2. HERBALS NOS W/VITAMINS NOS [Suspect]

REACTIONS (6)
  - ARTHRALGIA [None]
  - FATIGUE [None]
  - INJECTION SITE PAIN [None]
  - NAUSEA [None]
  - SERUM SICKNESS [None]
  - SLUGGISHNESS [None]
